FAERS Safety Report 9964988 (Version 1)
Quarter: 2014Q1

REPORT INFORMATION
  Report Type: Report from Study
  Country: US (occurrence: US)
  Receive Date: 20140305
  Receipt Date: 20140305
  Transmission Date: 20141002
  Serious: No
  Sender: FDA-Public Use
  Company Number: US-ABBVIE-13P-163-1128554-00

PATIENT
  Age: 43 Year
  Sex: Female
  Weight: 79.9 kg

DRUGS (2)
  1. HUMIRA [Suspect]
     Indication: CROHN^S DISEASE
     Dosage: LOADING DOSE
     Dates: start: 20130203
  2. HUMIRA [Suspect]
     Dates: start: 201302

REACTIONS (1)
  - Abdominal pain [Not Recovered/Not Resolved]
